FAERS Safety Report 4547178-7 (Version None)
Quarter: 2005Q1

REPORT INFORMATION
  Report Type: 
  Country: None (occurrence: None)
  Receive Date: 20050107
  Receipt Date: 20050104
  Transmission Date: 20050727
  Serious: Yes (Death)
  Sender: FDA-Public Use
  Company Number: 200510043FR

PATIENT
  Age: 85 Year
  Sex: Female

DRUGS (6)
  1. LASILIX 40 MG [Suspect]
     Indication: ANGINA PECTORIS
     Route: 048
     Dates: start: 20030516, end: 20030622
  2. KALEORID [Suspect]
     Route: 048
     Dates: start: 20030516, end: 20030622
  3. MUCOMYST [Suspect]
     Indication: RESPIRATORY DISORDER
     Route: 039
     Dates: start: 20030527, end: 20030622
  4. VASTAREL [Suspect]
     Indication: ANGINA PECTORIS
     Route: 048
     Dates: start: 20030201, end: 20030626
  5. CLARITIN [Suspect]
     Indication: RHINITIS ALLERGIC
     Dosage: DOSE UNIT: UNITS
     Route: 048
     Dates: start: 20030522, end: 20030622
  6. PARIET [Concomitant]
     Indication: GASTRITIS
     Route: 048
     Dates: start: 20030201

REACTIONS (2)
  - PNEUMONIA [None]
  - STEVENS-JOHNSON SYNDROME [None]
